FAERS Safety Report 5364470-7 (Version None)
Quarter: 2007Q2

REPORT INFORMATION
  Report Type: 
  Country: None (occurrence: None)
  Receive Date: 20070611
  Receipt Date: 20061116
  Transmission Date: 20071010
  Serious: Yes (Other)
  Sender: FDA-Public Use
  Company Number: USA-2006-0025778

PATIENT
  Sex: Female

DRUGS (3)
  1. OXYCONTIN [Suspect]
     Indication: DRUG ABUSER
     Dosage: SEE TEXT
  2. VICODIN [Suspect]
     Indication: DRUG ABUSER
  3. PERCOCET [Suspect]
     Indication: DRUG ABUSER

REACTIONS (2)
  - POLYSUBSTANCE DEPENDENCE [None]
  - THEFT [None]
